FAERS Safety Report 19595165 (Version 6)
Quarter: 2022Q1

REPORT INFORMATION
  Report Type: Spontaneous
  Country: US (occurrence: US)
  Receive Date: 20210722
  Receipt Date: 20220217
  Transmission Date: 20220423
  Serious: No
  Sender: FDA-Public Use
  Company Number: US-PFIZER INC-2021541911

PATIENT
  Age: 74 Year
  Sex: Female

DRUGS (8)
  1. IBRANCE [Suspect]
     Active Substance: PALBOCICLIB
     Dosage: 100 MG
     Dates: start: 20210427
  2. IBRANCE [Suspect]
     Active Substance: PALBOCICLIB
     Dosage: 100 MG
     Dates: start: 20210506
  3. IBRANCE [Suspect]
     Active Substance: PALBOCICLIB
     Dosage: 125 MG
     Dates: start: 20210507
  4. IBRANCE [Suspect]
     Active Substance: PALBOCICLIB
     Dosage: 125 MG
     Dates: start: 20210511
  5. IBRANCE [Suspect]
     Active Substance: PALBOCICLIB
     Dosage: 125 MG
     Dates: start: 20210607
  6. IBRANCE [Suspect]
     Active Substance: PALBOCICLIB
     Dosage: 125 MG
     Dates: start: 20210609
  7. IBRANCE [Suspect]
     Active Substance: PALBOCICLIB
     Dosage: 100 MG
     Dates: start: 20210628
  8. IBRANCE [Suspect]
     Active Substance: PALBOCICLIB
     Dosage: 150 MG

REACTIONS (19)
  - Product dose omission issue [Unknown]
  - Off label use [Unknown]
  - Asthenia [Unknown]
  - Somnolence [Unknown]
  - Confusional state [Unknown]
  - Decreased appetite [Unknown]
  - Full blood count abnormal [Unknown]
  - Renal disorder [Unknown]
  - Fall [Unknown]
  - Fatigue [Not Recovered/Not Resolved]
  - Dry eye [Recovered/Resolved]
  - Eye disorder [Recovered/Resolved]
  - Ocular icterus [Recovered/Resolved]
  - Hepatic enzyme increased [Not Recovered/Not Resolved]
  - Energy increased [Unknown]
  - Insomnia [Unknown]
  - Nausea [Unknown]
  - Stomatitis [Unknown]
  - Joint lock [Unknown]

NARRATIVE: CASE EVENT DATE: 20210501
